FAERS Safety Report 5423291-7 (Version None)
Quarter: 2007Q3

REPORT INFORMATION
  Report Type: 
  Country: None (occurrence: None)
  Receive Date: 20070823
  Receipt Date: 20070816
  Transmission Date: 20080115
  Serious: Yes (Other)
  Sender: FDA-Public Use
  Company Number: PHBS2007BR13723

PATIENT
  Sex: Male
  Weight: 82 kg

DRUGS (3)
  1. DIOVAN [Suspect]
     Indication: HYPERTENSION
     Dosage: 80 MG, UNK
     Route: 048
  2. DIOVAN [Suspect]
     Dosage: 160 MG, UNK
     Route: 048
  3. HYGROTON [Suspect]
     Dosage: 50 MG, UNK

REACTIONS (2)
  - RENAL CYST [None]
  - TINNITUS [None]
